FAERS Safety Report 5387202-5 (Version None)
Quarter: 2007Q3

REPORT INFORMATION
  Report Type: 
  Country: None (occurrence: None)
  Receive Date: 20070711
  Receipt Date: 20070627
  Transmission Date: 20080115
  Serious: Yes (Hospitalization)
  Sender: FDA-Public Use
  Company Number: US-CVT-070128

PATIENT
  Age: 52 Year
  Sex: Male

DRUGS (9)
  1. RANEXA [Suspect]
     Indication: ANGINA PECTORIS
     Dosage: 7 TABLET, ORAL
     Route: 048
  2. METHADONE HCL [Concomitant]
  3. VICODIN [Concomitant]
  4. INSULIN (INSULIN) [Concomitant]
  5. GLYBURIDE [Concomitant]
  6. ASPIRIN [Concomitant]
  7. METOPROLOL TARTRATE [Concomitant]
  8. AMBIEN [Concomitant]
  9. LASIX [Concomitant]

REACTIONS (5)
  - DIALYSIS [None]
  - HYPOTENSION [None]
  - MECHANICAL VENTILATION [None]
  - MULTIPLE DRUG OVERDOSE INTENTIONAL [None]
  - RENAL IMPAIRMENT [None]
